FAERS Safety Report 4804168-4 (Version None)
Quarter: 2005Q4

REPORT INFORMATION
  Report Type: 
  Country: None (occurrence: None)
  Receive Date: 20051014
  Receipt Date: 20051007
  Transmission Date: 20060501
  Serious: Yes (Hospitalization)
  Sender: FDA-Public Use
  Company Number: KII-2005-0018981

PATIENT
  Age: 31 Year
  Sex: Female

DRUGS (2)
  1. OXYCONTIN [Suspect]
     Dosage: SEE TEXT, ORAL
     Route: 048
  2. CYCLOBENZAPRINE HCL [Concomitant]

REACTIONS (4)
  - ACCIDENTAL OVERDOSE [None]
  - DYSARTHRIA [None]
  - SOMNOLENCE [None]
  - WRONG DRUG ADMINISTERED [None]
